FAERS Safety Report 8384587-2 (Version None)
Quarter: 2012Q2

REPORT INFORMATION
  Report Type: 
  Country: None (occurrence: None)
  Receive Date: 20120524
  Receipt Date: 20120517
  Transmission Date: 20120825
  Serious: Yes (Hospitalization)
  Sender: FDA-Public Use
  Company Number: US-JNJFOC-20111104991

PATIENT
  Sex: Female
  Weight: 68.2 kg

DRUGS (5)
  1. YAZ [Concomitant]
     Indication: PRODUCT USED FOR UNKNOWN INDICATION
  2. HYDROCODONE BITARTRATE AND IBUPROFEN [Concomitant]
     Indication: PAIN
     Dosage: EVERY 4 HOURS AS NEEDED
  3. ALLEGRA [Concomitant]
     Indication: PRODUCT USED FOR UNKNOWN INDICATION
  4. TYLENOL [Suspect]
     Route: 065
  5. TYLENOL [Suspect]
     Indication: PRODUCT USED FOR UNKNOWN INDICATION
     Route: 065

REACTIONS (2)
  - ACUTE HEPATIC FAILURE [None]
  - OVERDOSE [None]
